FAERS Safety Report 4880343-8 (Version None)
Quarter: 2006Q1

REPORT INFORMATION
  Report Type: 
  Country: None (occurrence: None)
  Receive Date: 20060111
  Receipt Date: 20060111
  Transmission Date: 20060701
  Serious: Yes (Other)
  Sender: FDA-Public Use
  Company Number: None

PATIENT
  Age: 73 Year
  Sex: Male

DRUGS (5)
  1. WARFARIN 5MG [Suspect]
     Indication: ANTICOAGULANT THERAPY
     Dosage: 1QD UD
     Dates: start: 20051026
  2. SPIRONOLACTONE [Concomitant]
  3. COREG [Concomitant]
  4. LIPITOR [Concomitant]
  5. BENICAR [Concomitant]

REACTIONS (3)
  - DRUG INEFFECTIVE [None]
  - INTERNATIONAL NORMALISED RATIO ABNORMAL [None]
  - PHARMACEUTICAL PRODUCT COMPLAINT [None]
